FAERS Safety Report 10095337 (Version 3)
Quarter: 2014Q4

REPORT INFORMATION
  Report Type: Spontaneous
  Country: US (occurrence: None)
  Receive Date: 20140418
  Receipt Date: 20141126
  Transmission Date: 20150528
  Serious: Yes (Other)
  Sender: FDA-Public Use
  Company Number: 2013-US-002686

PATIENT
  Age: 32 Year
  Sex: Female

DRUGS (2)
  1. XYREM [Suspect]
     Active Substance: SODIUM OXYBATE
     Indication: NARCOLEPSY
     Route: 048
     Dates: start: 201102, end: 2011
  2. NUVIGIL (AMODAFINIL) [Concomitant]

REACTIONS (7)
  - Condition aggravated [None]
  - Sleep apnoea syndrome [None]
  - Weight increased [None]
  - Snoring [None]
  - Tremor [None]
  - Drug ineffective [None]
  - Nasal septum deviation [None]
